FAERS Safety Report 12807302 (Version 2)
Quarter: 2016Q4

REPORT INFORMATION
  Report Type: Spontaneous
  Country: DE (occurrence: DE)
  Receive Date: 20161004
  Receipt Date: 20161128
  Transmission Date: 20170207
  Serious: Yes (Other)
  Sender: FDA-Public Use
  Company Number: DE-PFIZER INC-2016453199

PATIENT
  Age: 52 Year
  Sex: Male
  Weight: 85 kg

DRUGS (5)
  1. TREVILOR RETARD [Suspect]
     Active Substance: VENLAFAXINE HYDROCHLORIDE
     Indication: DEPRESSION
     Dosage: 75 MG, 1X1 TO 2X1
     Route: 048
     Dates: start: 199703
  2. ORFIRIL LONG [Concomitant]
     Active Substance: VALPROIC ACID
     Dosage: 300 MG, 3X/DAY
     Route: 048
     Dates: start: 201205
  3. TREVILOR RETARD [Suspect]
     Active Substance: VENLAFAXINE HYDROCHLORIDE
     Indication: BIPOLAR DISORDER
  4. ORFIRIL LONG [Concomitant]
     Active Substance: VALPROIC ACID
     Indication: PROPHYLAXIS
     Dosage: 300 MG, 3X/DAY
     Route: 048
     Dates: start: 199901, end: 200001
  5. ORFIRIL LONG [Concomitant]
     Active Substance: VALPROIC ACID
     Dosage: 300 MG, 3X/DAY
     Route: 048
     Dates: start: 201001, end: 201203

REACTIONS (1)
  - Neuroendocrine tumour [Unknown]

NARRATIVE: CASE EVENT DATE: 201110
